FAERS Safety Report 26190842 (Version 1)
Quarter: 2025Q4

REPORT INFORMATION
  Report Type: Spontaneous
  Country: US (occurrence: US)
  Receive Date: 20251223
  Receipt Date: 20251223
  Transmission Date: 20260117
  Serious: Yes (Life-Threatening, Hospitalization)
  Sender: SANDOZ
  Company Number: US-MLMSERVICE-20251210-PI745436-00247-1

PATIENT
  Age: 36 Year
  Sex: Female

DRUGS (2)
  1. ONDANSETRON [Suspect]
     Active Substance: ONDANSETRON
     Indication: Antiemetic supportive care
     Dosage: 4 MG
  2. PROCHLORPERAZINE [Suspect]
     Active Substance: PROCHLORPERAZINE
     Indication: Antiemetic supportive care
     Dosage: 5 MG

REACTIONS (1)
  - Ventricular tachycardia [Recovered/Resolved]
